FAERS Safety Report 9267349 (Version 1)
Quarter: 2013Q2

REPORT INFORMATION
  Report Type: Spontaneous
  Country: US (occurrence: US)
  Receive Date: 20130502
  Receipt Date: 20130502
  Transmission Date: 20140414
  Serious: Yes (Death)
  Sender: FDA-Public Use
  Company Number: US-PFIZER INC-2013135561

PATIENT
  Age: 66 Year
  Sex: Female

DRUGS (1)
  1. RAPAMUNE [Suspect]
     Indication: LUNG TRANSPLANT
     Dosage: 1 MG, 1X/DAY
     Dates: start: 20120824

REACTIONS (2)
  - Renal failure chronic [Fatal]
  - Off label use [Unknown]
